FAERS Safety Report 20039401 (Version 1)
Quarter: 2021Q4

REPORT INFORMATION
  Report Type: Spontaneous
  Country: US (occurrence: US)
  Receive Date: 20211105
  Receipt Date: 20211105
  Transmission Date: 20220303
  Serious: Yes (Hospitalization, Other)
  Sender: FDA-Public Use
  Company Number: US-TEVA-2021-US-1973816

PATIENT
  Age: 54 Year
  Sex: Male

DRUGS (2)
  1. AZACITIDINE [Suspect]
     Active Substance: AZACITIDINE
     Indication: Myelodysplastic syndrome
     Dosage: 2.6786 MG/M2 DAILY; 7 DAY CYCLE EVERY 28 DAYS
     Route: 058
  2. AZACITIDINE [Suspect]
     Active Substance: AZACITIDINE
     Indication: Chemotherapy

REACTIONS (1)
  - Pericardial effusion [Recovered/Resolved]
